FAERS Safety Report 22019173 (Version 1)
Quarter: 2023Q1

REPORT INFORMATION
  Report Type: Spontaneous
  Country: PT (occurrence: PT)
  Receive Date: 20230222
  Receipt Date: 20230222
  Transmission Date: 20230418
  Serious: Yes (Other)
  Sender: FDA-Public Use
  Company Number: PT-SUN PHARMACEUTICAL INDUSTRIES LTD-2020R1-244547

PATIENT
  Age: 63 Year
  Sex: Female

DRUGS (2)
  1. CIPROFLOXACIN [Suspect]
     Active Substance: CIPROFLOXACIN
     Indication: Product used for unknown indication
     Dosage: UNK
     Route: 065
  2. NORFLOXACIN [Suspect]
     Active Substance: NORFLOXACIN
     Indication: Cystitis
     Dosage: UNK
     Route: 065

REACTIONS (2)
  - Cross sensitivity reaction [Unknown]
  - Fixed eruption [Recovered/Resolved]
